FAERS Safety Report 11450381 (Version 1)
Quarter: 2015Q3

REPORT INFORMATION
  Report Type: Spontaneous
  Country: US (occurrence: US)
  Receive Date: 20150903
  Receipt Date: 20150903
  Transmission Date: 20151125
  Serious: No
  Sender: FDA-Public Use
  Company Number: US-ROCHE-1019102

PATIENT
  Sex: Female

DRUGS (2)
  1. PEGASYS [Suspect]
     Active Substance: PEGINTERFERON ALFA-2A
     Indication: HEPATITIS C
     Route: 058
     Dates: start: 20110916
  2. RIBAVIRIN. [Suspect]
     Active Substance: RIBAVIRIN
     Indication: HEPATITIS C
     Route: 048
     Dates: start: 20110916

REACTIONS (8)
  - Influenza like illness [Unknown]
  - Abdominal distension [Unknown]
  - Contusion [Unknown]
  - Back pain [Unknown]
  - Tenderness [Unknown]
  - Rash [Unknown]
  - Nausea [Unknown]
  - Insomnia [Unknown]
